FAERS Safety Report 6328150-3 (Version None)
Quarter: 2009Q3

REPORT INFORMATION
  Report Type: 
  Country: None (occurrence: None)
  Receive Date: 20090825
  Receipt Date: 20081117
  Transmission Date: 20100115
  Serious: No
  Sender: FDA-Public Use
  Company Number: US-ABBOTT-08P-163-0487656-00

PATIENT
  Sex: Female
  Weight: 68.1 kg

DRUGS (6)
  1. SYNTHROID [Suspect]
     Indication: THYROIDECTOMY
     Route: 048
  2. SYNTHROID [Suspect]
     Route: 048
  3. METRONIDAZOLE [Concomitant]
     Indication: ROSACEA
  4. MOMETASONE FUROATE [Concomitant]
     Indication: POSTNASAL DRIP
     Route: 045
  5. SALBUTAMOL [Concomitant]
     Indication: POSTNASAL DRIP
     Route: 055
  6. UNKNOWN ALLERGY PILL [Concomitant]
     Indication: POSTNASAL DRIP
     Route: 048

REACTIONS (3)
  - FATIGUE [None]
  - FEELING ABNORMAL [None]
  - RESORPTION BONE INCREASED [None]
